FAERS Safety Report 20625471 (Version 1)
Quarter: 2022Q1

REPORT INFORMATION
  Report Type: Spontaneous
  Country: NL (occurrence: NL)
  Receive Date: 20220323
  Receipt Date: 20220323
  Transmission Date: 20220423
  Serious: Yes (Life-Threatening)
  Sender: FDA-Public Use
  Company Number: None

PATIENT
  Age: 97 Year
  Sex: Female

DRUGS (12)
  1. CLOPIDOGREL [Suspect]
     Active Substance: CLOPIDOGREL BISULFATE
     Indication: Cerebrovascular accident prophylaxis
     Dosage: 75 MILLIGRAM DAILY; 1 TIME A DAY 1 PIECE, FORM STRENGTH: 75MG / BRAND NAME NOT SPECIFIED
     Dates: start: 20210306, end: 20210325
  2. CALCI CHEW [Concomitant]
     Dosage: 500 MILLIGRAM DAILY; 0 - 1 - 0 - 0 PIECES, FORM STRENGTH: 1.25G (500MG CA), THERAPY END DATE: ASKU
     Dates: start: 20180227
  3. LIDOCAINE [Concomitant]
     Active Substance: LIDOCAINE
     Dosage: IF NECESSARY BECAUSE OF PAIN WITH DEFECATION, VASELINE, FORM STRENGTH: 30MG/G, UNIT DOSE: 1 DF / BRA
  4. LISINOPRIL [Concomitant]
     Active Substance: LISINOPRIL
     Dosage: 5 MILLIGRAM DAILY; 0 - 0 - 1 - 0 PIECES, FORM STRENGTH: 5MG / BRAND NAME NOT SPECIFIED, THERAPY END
     Dates: start: 20211016
  5. DOCUSATE SODIUM [Concomitant]
     Active Substance: DOCUSATE SODIUM
     Dosage: X - 0 - 0 - 0 PIECES, MON - WED - FRI, FORM STRENGTH: 1/250MG/ML, UNIT DOSE: 1 DF, THERAPY END DATE:
     Dates: start: 20220223
  6. OXYCODONE [Concomitant]
     Active Substance: OXYCODONE
     Dosage: 5 MILLIGRAM DAILY; IF NECESSARY 0 - 0 - 0 - 0 PIECES IF NECESSARY WITH MORNING CARE 1 TABLET PER DAY
  7. OMEPRAZOLE [Concomitant]
     Active Substance: OMEPRAZOLE
     Dosage: 20 MILLIGRAM DAILY; 1 - 0 - 0 - 0 PIECES,  MSR FORM STRENGTH: 20MG / BRAND NAME NOT SPECIFIED, THERA
     Dates: start: 20210410
  8. CHOLECALCIFEROL [Concomitant]
     Active Substance: CHOLECALCIFEROL
     Dosage: 1 DOSAGE FORMS DAILY; 1 - 0 - 0 - 0 PIECES, FORM STRENGTH:  800IU, THERAPY END DATE: ASKU
     Dates: start: 20210417
  9. LACTULOSE [Concomitant]
     Active Substance: LACTULOSE
     Dosage: 15 ML DAILY; 15 - 0 - 0 - 0 MILLILITER, FORM STRENGTH: 670MG/ML (500MG/G) / BRAND NAME NOT SPECIFIED
     Dates: start: 20190904
  10. COSMETICS [Concomitant]
     Active Substance: COSMETICS
     Dosage: X - 0 - 0 - APPLY X, BRAND NAME NOT SPECIFIED, THERAPY END DATE: ASKU, UNIT DOSE: 1 DF
     Dates: start: 20180302
  11. LISINOPRIL [Concomitant]
     Active Substance: LISINOPRIL
     Dosage: 2.5 MILLIGRAM DAILY; 0 - 0 - 1 - 0 PIECES, FORM STRENGTH: 2.5MG / BRAND NAME NOT SPECIFIED, THERAPY
     Dates: start: 20211016
  12. ACETAMINOPHEN [Concomitant]
     Active Substance: ACETAMINOPHEN
     Indication: Pain
     Dosage: IF NECESSARY 0 - 0 - 0 - 0 PIECES ZN 3DD1000MG FOR PAIN, FORM STRENGTH: 500 MG, UNIT DOSE: 1000 MG /

REACTIONS (1)
  - Lichen planus [Recovered/Resolved]

NARRATIVE: CASE EVENT DATE: 20210312
